FAERS Safety Report 23532926 (Version 1)
Quarter: 2024Q1

REPORT INFORMATION
  Report Type: Spontaneous
  Country: US (occurrence: None)
  Receive Date: 20240216
  Receipt Date: 20240216
  Transmission Date: 20240409
  Serious: Yes (Disabling)
  Sender: FDA-Public Use
  Company Number: None

PATIENT
  Age: 85 Year
  Sex: Female

DRUGS (1)
  1. ALENDRONATE [Suspect]
     Active Substance: ALENDRONATE SODIUM
     Dates: start: 20240110, end: 20240211

REACTIONS (3)
  - Pain in extremity [None]
  - Therapy cessation [None]
  - Mobility decreased [None]

NARRATIVE: CASE EVENT DATE: 20240211
